FAERS Safety Report 9638202 (Version 3)
Quarter: 2013Q4

REPORT INFORMATION
  Report Type: Spontaneous
  Country: US (occurrence: US)
  Receive Date: 20131022
  Receipt Date: 20131120
  Transmission Date: 20140711
  Serious: No
  Sender: FDA-Public Use
  Company Number: US-PFIZER INC-2013299474

PATIENT
  Age: 51 Year
  Sex: Male

DRUGS (9)
  1. LYRICA [Suspect]
     Dosage: UNK
  2. CHLORTHALIDONE [Suspect]
     Dosage: UNK
  3. PRAVASTATIN SODIUM [Suspect]
     Dosage: UNK
  4. PLAVIX [Suspect]
     Dosage: UNK
  5. CYMBALTA [Suspect]
     Dosage: UNK
  6. HYDROCHLOROTHIAZIDE/ LOSARTAN [Suspect]
     Dosage: UNK
  7. CRESTOR [Suspect]
     Dosage: UNK
  8. BYSTOLIC [Suspect]
     Dosage: UNK
  9. ASPIRIN [Suspect]
     Dosage: 81 MG, UNK

REACTIONS (1)
  - Drug hypersensitivity [Unknown]
